FAERS Safety Report 19418900 (Version 1)
Quarter: 2021Q2

REPORT INFORMATION
  Report Type: Spontaneous
  Country: HU (occurrence: HU)
  Receive Date: 20210615
  Receipt Date: 20210615
  Transmission Date: 20210717
  Serious: Yes (Hospitalization)
  Sender: FDA-Public Use
  Company Number: HU-MYLANLABS-2021M1033957

PATIENT
  Age: 79 Year
  Sex: Male

DRUGS (4)
  1. WARFARIN MYLAN [Suspect]
     Active Substance: WARFARIN
     Dosage: UNK
  2. INSULIN [Concomitant]
     Active Substance: INSULIN NOS
     Indication: DIABETES MELLITUS
     Dosage: UNK
     Dates: start: 2012
  3. WARFARIN MYLAN [Suspect]
     Active Substance: WARFARIN
     Indication: THROMBOSIS
     Dosage: UNK
  4. FAMOTIDINE. [Concomitant]
     Active Substance: FAMOTIDINE
     Indication: GASTRITIS EROSIVE
     Dosage: 40 MILLIGRAM, BID

REACTIONS (1)
  - Fibrin D dimer increased [Unknown]
